FAERS Safety Report 7772255-7 (Version None)
Quarter: 2011Q3

REPORT INFORMATION
  Report Type: 
  Country: None (occurrence: None)
  Receive Date: 20110922
  Receipt Date: 20110418
  Transmission Date: 20111222
  Serious: Yes (Other)
  Sender: FDA-Public Use
  Company Number: US-ASTRAZENECA-2007UW05808

PATIENT
  Age: 671 Month
  Sex: Male
  Weight: 104.3 kg

DRUGS (9)
  1. SEROQUEL [Suspect]
     Dosage: 25 TO 50 MG DAILY
     Route: 048
     Dates: start: 20020510, end: 20060524
  2. ABILIFY [Concomitant]
     Dates: start: 20030101
  3. PROZAC [Concomitant]
  4. SEROQUEL [Suspect]
     Dosage: 25 TO 50 MG DAILY
     Route: 048
     Dates: start: 20020510, end: 20060524
  5. SEROQUEL [Suspect]
     Indication: DEPRESSION
     Route: 048
     Dates: start: 20020510
  6. SEROQUEL [Suspect]
     Indication: SLEEP DISORDER
     Route: 048
     Dates: start: 20020510
  7. METHOCARBAMOL [Concomitant]
     Dates: start: 20020510
  8. AXID [Concomitant]
     Dates: start: 20020522
  9. WELLBUTRIN SR [Concomitant]
     Dates: start: 20020510

REACTIONS (6)
  - KETOACIDOSIS [None]
  - HYPERLIPIDAEMIA [None]
  - BLOOD TRIGLYCERIDES INCREASED [None]
  - BLOOD CHOLESTEROL INCREASED [None]
  - PANCREATITIS [None]
  - TYPE 2 DIABETES MELLITUS [None]
